FAERS Safety Report 4646080-X (Version None)
Quarter: 2005Q2

REPORT INFORMATION
  Report Type: 
  Country: None (occurrence: None)
  Receive Date: 20050427
  Receipt Date: 20040328
  Transmission Date: 20051028
  Serious: Yes (Other)
  Sender: FDA-Public Use
  Company Number: US-GLAXOSMITHKLINE-A0507600A

PATIENT
  Age: 48 Year
  Sex: Female
  Weight: 73.6 kg

DRUGS (2)
  1. ZOFRAN [Suspect]
     Indication: VOMITING
     Dosage: 32MG SEE DOSAGE TEXT
     Route: 042
  2. DECADRON [Concomitant]
     Indication: NAUSEA
     Dosage: 16MG SINGLE DOSE
     Route: 042

REACTIONS (1)
  - OCULOGYRATION [None]
